FAERS Safety Report 7024866-4 (Version None)
Quarter: 2010Q4

REPORT INFORMATION
  Report Type: 
  Country: None (occurrence: None)
  Receive Date: 20101001
  Receipt Date: 20100927
  Transmission Date: 20110411
  Serious: Yes (Other)
  Sender: FDA-Public Use
  Company Number: US-BAYER-201020800BCC

PATIENT
  Age: 53 Year
  Sex: Male
  Weight: 88 kg

DRUGS (8)
  1. BACTINE LIQUID [Suspect]
     Indication: PRODUCT USED FOR UNKNOWN INDICATION
     Dosage: SUSPICIOUS OF POISONED WITH BACTINE
     Route: 065
  2. NARCOTICS [Concomitant]
     Indication: PAIN MANAGEMENT
  3. MAGNESIUM [Concomitant]
  4. GLUCOSAMINE [Concomitant]
  5. MULTIPLE VITAMIN [Concomitant]
  6. HYDROCORTISONE [Concomitant]
  7. TRYPTOPHAN [Concomitant]
  8. MEDICATION TO ALLERGY [Concomitant]
     Indication: HYPERSENSITIVITY
     Dosage: SHOT EVERY MONTH

REACTIONS (6)
  - ANHIDROSIS [None]
  - DIARRHOEA [None]
  - DRY MOUTH [None]
  - FLATULENCE [None]
  - NAUSEA [None]
  - VIITH NERVE PARALYSIS [None]
